FAERS Safety Report 7958354-5 (Version None)
Quarter: 2011Q4

REPORT INFORMATION
  Report Type: 
  Country: None (occurrence: None)
  Receive Date: 20111205
  Receipt Date: 20111205
  Transmission Date: 20120403
  Serious: Yes (Hospitalization)
  Sender: FDA-Public Use
  Company Number: AU-ROCHE-1010061

PATIENT
  Sex: Male
  Weight: 84 kg

DRUGS (10)
  1. ASPIRIN [Concomitant]
     Dates: start: 20020101
  2. MABTHERA [Suspect]
     Indication: CHRONIC GRAFT VERSUS HOST DISEASE
     Route: 042
     Dates: start: 20110408
  3. ACTONEL [Concomitant]
  4. RABEPRAZOLE SODIUM [Concomitant]
     Dates: start: 20060301
  5. MABTHERA [Suspect]
     Route: 042
     Dates: start: 20110720
  6. BACTRIM DS [Concomitant]
     Dosage: 1 TABLET
     Dates: start: 20060101
  7. PERINDOPRIL [Concomitant]
     Dates: start: 20020101
  8. TACROLIMUS [Concomitant]
     Dates: start: 20110913
  9. FLUCONAZOLE [Concomitant]
     Dates: start: 20060101
  10. VALACICLOVIR [Concomitant]
     Dates: start: 20060301

REACTIONS (2)
  - SQUAMOUS CELL CARCINOMA [None]
  - BASAL CELL CARCINOMA [None]
